FAERS Safety Report 6728411-X (Version None)
Quarter: 2010Q2

REPORT INFORMATION
  Report Type: 
  Country: None (occurrence: None)
  Receive Date: 20100517
  Receipt Date: 20100504
  Transmission Date: 20101027
  Serious: Yes (Other)
  Sender: FDA-Public Use
  Company Number: US-PFIZER INC-2010051610

PATIENT
  Sex: Female
  Weight: 72.562 kg

DRUGS (13)
  1. CHANTIX [Suspect]
     Indication: SMOKING CESSATION THERAPY
     Dosage: 1 MG, 2X/DAY
     Route: 048
     Dates: start: 20100405
  2. CHANTIX [Suspect]
     Dosage: UNK
     Route: 048
     Dates: start: 20100408
  3. XANAX [Suspect]
     Indication: PANIC ATTACK
     Dosage: 2 MG, 1X/DAY
     Route: 048
  4. XANAX [Suspect]
     Indication: MENTAL DISORDER
     Dosage: 3X/DAY
  5. RISPERDAL [Suspect]
     Indication: INSOMNIA
     Dosage: 2 MG, 1X/DAY
     Route: 048
  6. RISPERDAL [Suspect]
     Indication: MENTAL DISORDER
  7. PROZAC [Suspect]
     Indication: MENTAL DISORDER
     Dosage: 20 MG, 1X/DAY
     Route: 048
  8. HYDROCHLOROTHIAZIDE [Concomitant]
     Indication: HYPERTENSION
     Dosage: 25 MG, 1X/DAY
     Route: 048
  9. ZESTRIL [Concomitant]
     Indication: HYPERTENSION
     Dosage: 10 MG, 1X/DAY
     Route: 048
  10. LEVOXYL [Concomitant]
     Indication: HYPOTHYROIDISM
     Dosage: 100 UG, 1X/DAY
     Route: 048
  11. SPIRIVA [Concomitant]
     Dosage: 18 UG, 1X/DAY
     Route: 055
  12. ADVAIR DISKUS 100/50 [Concomitant]
     Dosage: 5-50
     Route: 055
  13. NAPROXEN [Concomitant]
     Indication: ARTHRITIS
     Dosage: 500 MG, EVERY 2 HOURS
     Route: 048

REACTIONS (2)
  - INSOMNIA [None]
  - NERVOUSNESS [None]
